FAERS Safety Report 25341854 (Version 1)
Quarter: 2025Q2

REPORT INFORMATION
  Report Type: Other
  Country: US (occurrence: US)
  Receive Date: 20250521
  Receipt Date: 20250521
  Transmission Date: 20250716
  Serious: Yes (Other)
  Sender: CHANGZHOU PHARMACEUTICAL FACTORY
  Company Number: US-Changzhou Pharmaceutical Factory-2177186

PATIENT
  Age: 30 Year
  Sex: Female

DRUGS (1)
  1. DOXYCYCLINE HYCLATE [Suspect]
     Active Substance: DOXYCYCLINE HYCLATE
     Indication: Animal bite

REACTIONS (3)
  - Cholestatic liver injury [Recovered/Resolved]
  - Product use in unapproved indication [Unknown]
  - Drug-induced liver injury [Recovered/Resolved]
